FAERS Safety Report 12517832 (Version 3)
Quarter: 2017Q2

REPORT INFORMATION
  Report Type: Report from Study
  Country: US (occurrence: US)
  Receive Date: 20160630
  Receipt Date: 20170425
  Transmission Date: 20170830
  Serious: Yes (Other)
  Sender: FDA-Public Use
  Company Number: ALCN2016US004468

PATIENT
  Sex: Female
  Weight: 97.96 kg

DRUGS (2)
  1. COSOPT [Concomitant]
     Active Substance: DORZOLAMIDE HYDROCHLORIDE\TIMOLOL MALEATE
     Indication: GLAUCOMA
     Dosage: UNK
     Route: 047
     Dates: start: 1986
  2. TRAVATAN Z [Suspect]
     Active Substance: TRAVOPROST
     Indication: GLAUCOMA
     Dosage: UNK
     Route: 047
     Dates: start: 1986, end: 2015

REACTIONS (8)
  - Nausea [Unknown]
  - Intraocular pressure increased [Unknown]
  - Diabetes mellitus [Not Recovered/Not Resolved]
  - Blindness unilateral [Not Recovered/Not Resolved]
  - Retinal tear [Unknown]
  - Visual impairment [Recovering/Resolving]
  - Malaise [Unknown]
  - Eye pain [Unknown]

NARRATIVE: CASE EVENT DATE: 2006
